FAERS Safety Report 8499558-5 (Version None)
Quarter: 2012Q3

REPORT INFORMATION
  Report Type: 
  Country: None (occurrence: None)
  Receive Date: 20120710
  Receipt Date: 20120702
  Transmission Date: 20120928
  Serious: Yes (Other)
  Sender: FDA-Public Use
  Company Number: JP-BRISTOL-MYERS SQUIBB COMPANY-16731218

PATIENT
  Age: 43 Year
  Sex: Male

DRUGS (2)
  1. ABILIFY [Suspect]
     Indication: DEPRESSION
     Route: 048
  2. DULOXETINE HYDROCHLORIDE [Suspect]
     Indication: DEPRESSION

REACTIONS (1)
  - SEROTONIN SYNDROME [None]
